FAERS Safety Report 4372646-0 (Version None)
Quarter: 2004Q2

REPORT INFORMATION
  Report Type: 
  Country: None (occurrence: None)
  Receive Date: 20040526
  Receipt Date: 20040512
  Transmission Date: 20050107
  Serious: Yes (Hospitalization)
  Sender: FDA-Public Use
  Company Number: 2004-BP-03677BP (0)

PATIENT
  Age: 75 Year
  Sex: Male
  Weight: 99.34 kg

DRUGS (5)
  1. TIOTROPIUM INH. POWDER [Suspect]
     Indication: CHRONIC OBSTRUCTIVE AIRWAYS DISEASE
     Dosage: 18 MCG (18 MCG, QD) IH
     Route: 055
     Dates: start: 20030429
  2. CARDIZEM [Concomitant]
  3. FUROSEMIDE [Concomitant]
  4. ALBUTEROL [Concomitant]
  5. ASPIRIN [Concomitant]

REACTIONS (3)
  - ATRIAL FLUTTER [None]
  - DISEASE RECURRENCE [None]
  - DRUG INEFFECTIVE [None]
